FAERS Safety Report 15160643 (Version 2)
Quarter: 2018Q3

REPORT INFORMATION
  Report Type: Spontaneous
  Country: DE (occurrence: DE)
  Receive Date: 20180718
  Receipt Date: 20180814
  Transmission Date: 20181010
  Serious: Yes (Hospitalization)
  Sender: FDA-Public Use
  Company Number: DE-SA-2018SA188673

PATIENT
  Age: 62 Year
  Sex: Male

DRUGS (1)
  1. DUPIXENT [Suspect]
     Active Substance: DUPILUMAB
     Dosage: 300 MG
     Dates: start: 20180205

REACTIONS (4)
  - Conjunctivitis [Recovered/Resolved]
  - Keratitis [Recovered/Resolved]
  - Blepharitis [Not Recovered/Not Resolved]
  - Dacryostenosis acquired [Not Recovered/Not Resolved]

NARRATIVE: CASE EVENT DATE: 20180702
